FAERS Safety Report 14593151 (Version 1)
Quarter: 2018Q1

REPORT INFORMATION
  Report Type: Spontaneous
  Country: GB (occurrence: GB)
  Receive Date: 20180302
  Receipt Date: 20180302
  Transmission Date: 20180509
  Serious: Yes (Life-Threatening, Hospitalization, Other)
  Sender: FDA-Public Use
  Company Number: GB-009507513-1802JPN011910

PATIENT
  Age: 37 Year
  Sex: Male

DRUGS (15)
  1. FLUOROURACIL. [Suspect]
     Active Substance: FLUOROURACIL
     Indication: ANAL CANCER
     Dosage: 1000 MG/M2, ON DAYS 14 AND 29-32
     Route: 042
  2. FLUOROURACIL. [Suspect]
     Active Substance: FLUOROURACIL
     Dosage: 1500 MG, UNK
     Route: 042
     Dates: start: 20130611, end: 20130614
  3. MITOMYCIN. [Suspect]
     Active Substance: MITOMYCIN
     Dosage: UNK
  4. OXYCONTIN [Concomitant]
     Active Substance: OXYCODONE HYDROCHLORIDE
     Indication: TUMOUR PAIN
     Dosage: 5 MG, BID
     Route: 048
     Dates: start: 20130509, end: 20130723
  5. ISENTRESS [Suspect]
     Active Substance: RALTEGRAVIR POTASSIUM
     Indication: HIV INFECTION
     Dosage: 40 MG, BID
     Route: 048
  6. MITOMYCIN. [Suspect]
     Active Substance: MITOMYCIN
     Indication: ANAL CANCER
     Dosage: 18 MG, 1X/MONTH
     Route: 042
     Dates: start: 20130514, end: 20130514
  7. MITOMYCIN. [Suspect]
     Active Substance: MITOMYCIN
     Dosage: 10 MG, QD
     Dates: start: 20130611, end: 20130611
  8. NEUTROGIN [Concomitant]
     Active Substance: LENOGRASTIM
     Indication: NEUTROPENIA
     Dosage: 100 ?G, QD
     Route: 058
     Dates: start: 20130529, end: 20130531
  9. MITOMYCIN. [Suspect]
     Active Substance: MITOMYCIN
     Dosage: 10 MG/M2, ON DAYS 1 AND 29
     Route: 065
  10. PARIET [Concomitant]
     Active Substance: RABEPRAZOLE SODIUM
     Indication: GASTRITIS
     Dosage: 10 MG, QD
     Route: 048
  11. FLUOROURACIL. [Suspect]
     Active Substance: FLUOROURACIL
     Dosage: 800 MG/M2, ON DAYS 29-32
     Route: 042
  12. FLUOROURACIL. [Suspect]
     Active Substance: FLUOROURACIL
     Dosage: 1870 MG, 1X/WEEK
     Route: 042
     Dates: start: 20130514, end: 20130517
  13. FEBUXOSTAT. [Concomitant]
     Active Substance: FEBUXOSTAT
     Indication: HYPERURICAEMIA
     Dosage: 10 MG, QD
     Route: 048
     Dates: start: 20130511
  14. TRUVADA [Suspect]
     Active Substance: EMTRICITABINE\TENOFOVIR DISOPROXIL FUMARATE
     Indication: HIV INFECTION
     Dosage: 1 DF, QD
     Route: 048
  15. MAGNESIUM OXIDE. [Concomitant]
     Active Substance: MAGNESIUM OXIDE
     Indication: CONSTIPATION
     Dosage: 330 MG, TID
     Route: 048
     Dates: start: 20130509

REACTIONS (5)
  - CD4 lymphocytes decreased [Recovered/Resolved]
  - Neutropenia [Recovered/Resolved]
  - Radiation skin injury [Recovered/Resolved]
  - Leukopenia [Recovered/Resolved]
  - Thrombocytopenia [Recovered/Resolved]

NARRATIVE: CASE EVENT DATE: 20130527
